FAERS Safety Report 6945563-7 (Version None)
Quarter: 2010Q3

REPORT INFORMATION
  Report Type: 
  Country: None (occurrence: None)
  Receive Date: 20100827
  Receipt Date: 20100817
  Transmission Date: 20110219
  Serious: Yes (Other)
  Sender: FDA-Public Use
  Company Number: US-SANOFI-AVENTIS-2010SA037244

PATIENT
  Age: 67 Year
  Sex: Female
  Weight: 76.64 kg

DRUGS (19)
  1. PLAVIX [Suspect]
     Route: 048
     Dates: start: 20050101
  2. PRILOSEC [Suspect]
     Route: 048
     Dates: end: 20100101
  3. PRILOSEC [Suspect]
     Route: 048
  4. ZOLOFT [Concomitant]
  5. PREDNISONE [Concomitant]
  6. MACROBID [Concomitant]
  7. PRIMIDONE [Concomitant]
  8. ROBAXIN [Concomitant]
  9. LEVOTHYROXINE [Concomitant]
  10. CRESTOR [Concomitant]
  11. ESTROGEN NOS [Concomitant]
  12. NAPROXEN [Concomitant]
  13. FENTANYL CITRATE [Concomitant]
     Dosage: EVERY 4-5 DAYS
  14. REQUIP [Concomitant]
  15. SEROQUEL [Concomitant]
  16. NITROGLYCERIN [Concomitant]
  17. ZANTAC [Concomitant]
  18. VITAMIN B-12 [Concomitant]
  19. CARDIZEM [Concomitant]

REACTIONS (6)
  - ASTHENIA [None]
  - CHEST PAIN [None]
  - CORONARY ARTERY OCCLUSION [None]
  - DIZZINESS [None]
  - DYSPNOEA [None]
  - IN-STENT CORONARY ARTERY RESTENOSIS [None]
